FAERS Safety Report 11258274 (Version 1)
Quarter: 2015Q3

REPORT INFORMATION
  Report Type: Spontaneous
  Country: US (occurrence: None)
  Receive Date: 20150709
  Receipt Date: 20150709
  Transmission Date: 20151125
  Serious: No
  Sender: FDA-Public Use
  Company Number: None

PATIENT
  Age: 58 Year
  Sex: Male

DRUGS (6)
  1. AMPYRA [Suspect]
     Active Substance: DALFAMPRIDINE
     Indication: MULTIPLE SCLEROSIS
     Route: 048
     Dates: start: 201008
  2. INTERFERON BETA-1A [Concomitant]
     Active Substance: INTERFERON BETA-1A
  3. TERAZOSIN (HYTRIN) [Concomitant]
  4. MODAFINIL (PROVIGIL) [Concomitant]
  5. ALBUMIN [Concomitant]
     Active Substance: ALBUMIN (HUMAN)
  6. AVONEX WITH ALBUMIN [Concomitant]

REACTIONS (1)
  - Occult blood positive [None]

NARRATIVE: CASE EVENT DATE: 20150622
